FAERS Safety Report 25689689 (Version 1)
Quarter: 2025Q3

REPORT INFORMATION
  Report Type: Spontaneous
  Country: GB (occurrence: GB)
  Receive Date: 20250818
  Receipt Date: 20250818
  Transmission Date: 20251021
  Serious: Yes (Disabling, Other)
  Sender: ACCORD
  Company Number: None

PATIENT
  Age: 71 Year
  Sex: Female
  Weight: 185 kg

DRUGS (1)
  1. LISINOPRIL [Suspect]
     Active Substance: LISINOPRIL
     Indication: Hypertension
     Dates: start: 20241011, end: 20250301

REACTIONS (1)
  - Muscle spasms [Recovered/Resolved]

NARRATIVE: CASE EVENT DATE: 20241011
